FAERS Safety Report 8553444 (Version 3)
Quarter: 2012Q4

REPORT INFORMATION
  Report Type: 
  Country: GB (occurrence: GB)
  Receive Date: 20120509
  Receipt Date: 20121123
  Transmission Date: 20130627
  Serious: Yes (Death, Hospitalization)
  Sender: FDA-Public Use
  Company Number: PHFR2012GB002751

PATIENT
  Sex: Male

DRUGS (2)
  1. CLOZARIL [Suspect]
     Indication: SCHIZOPHRENIA
     Dosage: 850 mg, daily
     Route: 048
     Dates: start: 19950817
  2. METFORMIN HYDROCHLORIDE SANDOZ [Suspect]

REACTIONS (3)
  - Overdose [Fatal]
  - Cerebral disorder [Unknown]
  - Blood glucose decreased [Not Recovered/Not Resolved]
